FAERS Safety Report 18108723 (Version 1)
Quarter: 2020Q3

REPORT INFORMATION
  Report Type: Spontaneous
  Country: PT (occurrence: PT)
  Receive Date: 20200804
  Receipt Date: 20200804
  Transmission Date: 20201103
  Serious: Yes (Other)
  Sender: FDA-Public Use
  Company Number: PT-GLAXOSMITHKLINE-PT2020EME147682

PATIENT
  Age: 31 Year
  Sex: Female

DRUGS (2)
  1. BRISOVENT [Suspect]
     Active Substance: FLUTICASONE PROPIONATE
     Indication: RHINITIS ALLERGIC
     Dosage: 1 DF, BID
     Route: 055
     Dates: start: 202007, end: 20200727
  2. MONTELUKAST [Concomitant]
     Active Substance: MONTELUKAST SODIUM
     Indication: ASTHMA
     Dosage: UNK

REACTIONS (6)
  - Off label use [Recovered/Resolved]
  - Headache [Recovered/Resolved]
  - Candida infection [Recovered/Resolved]
  - Anxiety [Recovered/Resolved]
  - Hypertensive crisis [Recovered/Resolved]
  - Therapy cessation [Unknown]

NARRATIVE: CASE EVENT DATE: 202007
